FAERS Safety Report 9192743 (Version 2)
Quarter: 2013Q2

REPORT INFORMATION
  Report Type: Report from Study
  Country: BR (occurrence: BR)
  Receive Date: 20130327
  Receipt Date: 20130405
  Transmission Date: 20140414
  Serious: Yes (Hospitalization)
  Sender: FDA-Public Use
  Company Number: BR-GENZYME-CAMP-1002815

PATIENT
  Age: 46 Year
  Sex: Male
  Weight: 82.4 kg

DRUGS (5)
  1. ALEMTUZUMAB [Suspect]
     Indication: MULTIPLE SCLEROSIS
     Dosage: UNK UNK, UNK
     Route: 065
  2. BETAMETHASONE [Concomitant]
     Indication: PRODUCT USED FOR UNKNOWN INDICATION
  3. IBUPROFEN [Concomitant]
     Indication: PRODUCT USED FOR UNKNOWN INDICATION
  4. MOXIFLOXACIN [Concomitant]
     Indication: PNEUMONITIS
     Dosage: 400 MG, QD
     Route: 048
     Dates: start: 20130309
  5. PARACETAMOL [Concomitant]
     Indication: PNEUMONITIS
     Dosage: 500 MG, PRN
     Route: 048
     Dates: start: 20130226

REACTIONS (1)
  - Pancreas infection [Not Recovered/Not Resolved]
